FAERS Safety Report 7875460-4 (Version None)
Quarter: 2011Q4

REPORT INFORMATION
  Report Type: 
  Country: None (occurrence: None)
  Receive Date: 20111031
  Receipt Date: 20111022
  Transmission Date: 20120403
  Serious: No
  Sender: FDA-Public Use
  Company Number: PHHY2011CN15182

PATIENT
  Age: 33 Year
  Sex: Female

DRUGS (1)
  1. TEGRETOL [Suspect]
     Indication: EPILEPSY
     Dosage: 100 MG, BID

REACTIONS (2)
  - MATERNAL EXPOSURE DURING PREGNANCY [None]
  - NORMAL NEWBORN [None]
